FAERS Safety Report 6252607-7 (Version None)
Quarter: 2009Q3

REPORT INFORMATION
  Report Type: 
  Country: None (occurrence: None)
  Receive Date: 20090701
  Receipt Date: 20090623
  Transmission Date: 20100115
  Serious: Yes (Other)
  Sender: FDA-Public Use
  Company Number: US-ROCHE-635580

PATIENT
  Sex: Male

DRUGS (2)
  1. TAMIFLU [Suspect]
     Indication: DRUG USE FOR UNKNOWN INDICATION
     Dosage: FOR A DAY AND HALF
     Route: 065
  2. TAMIFLU [Suspect]
     Route: 065

REACTIONS (3)
  - DIARRHOEA [None]
  - HALLUCINATION [None]
  - VOMITING [None]
